FAERS Safety Report 6846040-4 (Version None)
Quarter: 2010Q3

REPORT INFORMATION
  Report Type: 
  Country: None (occurrence: None)
  Receive Date: 20100715
  Receipt Date: 20070905
  Transmission Date: 20110219
  Serious: No
  Sender: FDA-Public Use
  Company Number: US-PFIZER INC-2007073930

PATIENT
  Sex: Female
  Weight: 61.7 kg

DRUGS (2)
  1. CHANTIX [Suspect]
     Indication: SMOKING CESSATION THERAPY
     Dates: start: 20070531, end: 20070601
  2. LAMICTAL [Concomitant]

REACTIONS (2)
  - FATIGUE [None]
  - NAUSEA [None]
